FAERS Safety Report 5800674-4 (Version None)
Quarter: 2008Q3

REPORT INFORMATION
  Report Type: 
  Country: None (occurrence: None)
  Receive Date: 20080703
  Receipt Date: 20080623
  Transmission Date: 20090109
  Serious: Yes (Death, Hospitalization, Other)
  Sender: FDA-Public Use
  Company Number: FR-ROCHE-572568

PATIENT
  Age: 34 Year
  Sex: Female

DRUGS (8)
  1. CAPECITABINE [Suspect]
     Dosage: MONOTHERAPY.
     Route: 048
  2. FLUOROURACIL [Concomitant]
     Dosage: FIRST COURSE.
     Route: 042
  3. FLUOROURACIL [Concomitant]
     Dosage: FIRST COURSE.
     Route: 042
  4. FLUOROURACIL [Concomitant]
     Dosage: SECOND COURSE.
     Route: 042
  5. FLUOROURACIL [Concomitant]
     Dosage: SECOND COURSE.
     Route: 042
  6. FLUOROURACIL [Concomitant]
     Dosage: THIRD COURSE.
     Route: 042
  7. FLUOROURACIL [Concomitant]
     Dosage: FOURTH COURSE.
     Route: 042
  8. NAVELBINE [Concomitant]
     Dosage: GIVEN ON DAYS 1-8.

REACTIONS (7)
  - BREAST CANCER METASTATIC [None]
  - DEHYDRATION [None]
  - DIARRHOEA [None]
  - FEBRILE NEUTROPENIA [None]
  - INTESTINAL OBSTRUCTION [None]
  - MUCOSAL INFLAMMATION [None]
  - PYREXIA [None]
